FAERS Safety Report 10461824 (Version 1)
Quarter: 2014Q3

REPORT INFORMATION
  Report Type: Spontaneous
  Country: US (occurrence: None)
  Receive Date: 20140917
  Receipt Date: 20140917
  Transmission Date: 20150326
  Serious: Yes (Hospitalization)
  Sender: FDA-Public Use
  Company Number: None

PATIENT
  Age: 61 Year
  Sex: Male
  Weight: 57.9 kg

DRUGS (7)
  1. LISINOPRIL. [Concomitant]
     Active Substance: LISINOPRIL
  2. DECADRON [Concomitant]
     Active Substance: DEXAMETHASONE
  3. LOVENOX [Concomitant]
     Active Substance: ENOXAPARIN SODIUM
  4. MIRTAZAPINE. [Concomitant]
     Active Substance: MIRTAZAPINE
  5. METOPROLOL [Concomitant]
     Active Substance: METOPROLOL
  6. CISPLATIN. [Suspect]
     Active Substance: CISPLATIN
  7. REGLAN [Concomitant]
     Active Substance: METOCLOPRAMIDE HYDROCHLORIDE

REACTIONS (13)
  - Dehydration [None]
  - Asthenia [None]
  - Dizziness [None]
  - Weight decreased [None]
  - Renal failure acute [None]
  - Pancytopenia [None]
  - Hypotension [None]
  - Hyponatraemia [None]
  - Hypocalcaemia [None]
  - Hypomagnesaemia [None]
  - Diarrhoea [None]
  - Palpitations [None]
  - Clostridium difficile infection [None]

NARRATIVE: CASE EVENT DATE: 20140908
